FAERS Safety Report 5474432-7 (Version None)
Quarter: 2007Q4

REPORT INFORMATION
  Report Type: 
  Country: None (occurrence: None)
  Receive Date: 20071002
  Receipt Date: 20070926
  Transmission Date: 20080405
  Serious: Yes (Life-Threatening, Hospitalization)
  Sender: FDA-Public Use
  Company Number: PHBS2007JP12834

PATIENT
  Age: 60 Year
  Sex: Male
  Weight: 62 kg

DRUGS (2)
  1. VOLTAREN [Suspect]
     Indication: NECK PAIN
     Dosage: 50 MG/DAY
     Route: 054
     Dates: start: 20070214
  2. VOLTAREN [Suspect]
     Dosage: 50 MG/DAY
     Route: 054
     Dates: start: 20070214

REACTIONS (10)
  - ALTERED STATE OF CONSCIOUSNESS [None]
  - BLOOD PH DECREASED [None]
  - COUGH [None]
  - DYSPNOEA [None]
  - HYPERCAPNIA [None]
  - INTERMITTENT POSITIVE PRESSURE BREATHING [None]
  - JAPAN COMA SCALE ABNORMAL [None]
  - PCO2 DECREASED [None]
  - STATUS ASTHMATICUS [None]
  - STRIDOR [None]
